FAERS Safety Report 5061409-9 (Version None)
Quarter: 2006Q3

REPORT INFORMATION
  Report Type: 
  Country: None (occurrence: None)
  Receive Date: 20060725
  Receipt Date: 20060717
  Transmission Date: 20061208
  Serious: Yes (Hospitalization)
  Sender: FDA-Public Use
  Company Number: AR-BOEHRINGER INGELHEIM PHARMACEUTICALS, INC.-2006-BP-08180RA

PATIENT
  Sex: Female
  Weight: 67 kg

DRUGS (1)
  1. TIPRANAVIR / RITONAVIR CAPSULES, SOFTGELATIN [Suspect]
     Indication: HIV INFECTION
     Dosage: TPV/RTV 1000/400 MG
     Route: 048
     Dates: start: 20040921, end: 20060713

REACTIONS (2)
  - HEADACHE [None]
  - MENINGEAL DISORDER [None]
